FAERS Safety Report 7207352-8 (Version None)
Quarter: 2011Q1

REPORT INFORMATION
  Report Type: 
  Country: None (occurrence: None)
  Receive Date: 20110103
  Receipt Date: 20101222
  Transmission Date: 20110831
  Serious: Yes (Other)
  Sender: FDA-Public Use
  Company Number: US-PFIZER INC-2010177830

PATIENT
  Sex: Female
  Weight: 76.644 kg

DRUGS (3)
  1. METOPROLOL [Concomitant]
     Indication: HYPERTENSION
     Dosage: UNK
  2. NORVASC [Concomitant]
     Indication: PO2 DECREASED
     Dosage: UNK
  3. GABAPENTIN [Suspect]
     Indication: HERPES ZOSTER
     Dosage: 300 MG, 3X/DAY
     Route: 048
     Dates: start: 20101218

REACTIONS (1)
  - GASTROINTESTINAL MOTILITY DISORDER [None]
